FAERS Safety Report 11588269 (Version 1)
Quarter: 2015Q4

REPORT INFORMATION
  Report Type: Spontaneous
  Country: US (occurrence: None)
  Receive Date: 20151001
  Receipt Date: 20151001
  Transmission Date: 20160304
  Serious: Yes (Death)
  Sender: FDA-Public Use
  Company Number: None

PATIENT
  Age: 57 Year
  Sex: Male
  Weight: 81.65 kg

DRUGS (9)
  1. HYDROCODONE [Concomitant]
     Active Substance: HYDROCODONE
  2. LASIX [Concomitant]
     Active Substance: FUROSEMIDE
  3. CALCIUM [Concomitant]
     Active Substance: CALCIUM
  4. CENTRUM SILVER [Concomitant]
     Active Substance: MINERALS\VITAMINS
  5. ISOSOROBIDE MONOITRTE [Concomitant]
  6. POTASSIUM [Concomitant]
     Active Substance: POTASSIUM
  7. RA 22.3 DICHLORIDE INJECTION 1.35 MICROCURIES/KG BAYER PHARM AG [Suspect]
     Active Substance: RADIUM RA-223 DICHLORIDE
     Indication: PROSTATE CANCER METASTATIC
     Dosage: 1.35 MICROCURIES/KG
     Route: 042
     Dates: start: 20150528, end: 20150626
  8. METOPROLOL [Concomitant]
     Active Substance: METOPROLOL
  9. FENLYN PATCH [Concomitant]

REACTIONS (9)
  - Insomnia [None]
  - Chest discomfort [None]
  - Back pain [None]
  - Abdominal distension [None]
  - Weight increased [None]
  - Feeding disorder [None]
  - Fluid retention [None]
  - Fall [None]
  - Ascites [None]

NARRATIVE: CASE EVENT DATE: 20150626
